FAERS Safety Report 26005826 (Version 1)
Quarter: 2025Q4

REPORT INFORMATION
  Report Type: Spontaneous
  Country: EU (occurrence: EU)
  Receive Date: 20251106
  Receipt Date: 20251106
  Transmission Date: 20260118
  Serious: Yes (Other)
  Sender: ROCHE
  Company Number: None

PATIENT
  Age: 50 Year
  Sex: Male
  Weight: 65 kg

DRUGS (1)
  1. TOCILIZUMAB [Suspect]
     Active Substance: TOCILIZUMAB
     Indication: Rheumatoid arthritis
     Dosage: 1 FL A SETTIMANA
     Route: 058
     Dates: start: 202406, end: 202409

REACTIONS (2)
  - Transaminases increased [Recovered/Resolved]
  - Cholestasis [Recovered/Resolved]

NARRATIVE: CASE EVENT DATE: 20240601
